FAERS Safety Report 18568983 (Version 1)
Quarter: 2020Q4

REPORT INFORMATION
  Report Type: Spontaneous
  Country: GB (occurrence: GB)
  Receive Date: 20201202
  Receipt Date: 20201202
  Transmission Date: 20210114
  Serious: Yes (Other)
  Sender: FDA-Public Use
  Company Number: GB-PFIZER INC-2020470678

PATIENT
  Age: 31 Year
  Sex: Female
  Weight: 70 kg

DRUGS (2)
  1. DEPO-PROVERA [Suspect]
     Active Substance: MEDROXYPROGESTERONE ACETATE
     Indication: CONTRACEPTION
     Dosage: 150 MG
     Route: 030
     Dates: start: 20160728, end: 20201023
  2. INFLUENZA VACCINE (SPLIT VIRION, INACTIVATED) [Concomitant]
     Active Substance: INFLUENZA VIRUS VACCINE

REACTIONS (7)
  - Inflammation [Unknown]
  - Pain [Unknown]
  - Peripheral swelling [Unknown]
  - Skin discolouration [Unknown]
  - Injection site rash [Recovered/Resolved]
  - Urticaria [Not Recovered/Not Resolved]
  - Haematoma [Unknown]

NARRATIVE: CASE EVENT DATE: 202010
